FAERS Safety Report 10527011 (Version 1)
Quarter: 2014Q4

REPORT INFORMATION
  Report Type: Spontaneous
  Country: US (occurrence: None)
  Receive Date: 20141015
  Receipt Date: 20141015
  Transmission Date: 20150528
  Serious: Yes (Disabling)
  Sender: FDA-Public Use
  Company Number: None

PATIENT
  Age: 64 Year
  Sex: Female
  Weight: 67.13 kg

DRUGS (1)
  1. LEVOTHYROXIN [Suspect]
     Active Substance: LEVOTHYROXINE
     Indication: HYPOTHYROIDISM
     Route: 048

REACTIONS (7)
  - Thyroid pain [None]
  - Product quality issue [None]
  - Condition aggravated [None]
  - Weight increased [None]
  - Hair texture abnormal [None]
  - Alopecia [None]
  - Onychoclasis [None]

NARRATIVE: CASE EVENT DATE: 20141001
